FAERS Safety Report 10884975 (Version 1)
Quarter: 2015Q1

REPORT INFORMATION
  Report Type: Spontaneous
  Country: US (occurrence: None)
  Receive Date: 20150227
  Receipt Date: 20150227
  Transmission Date: 20150721
  Serious: Yes (Life-Threatening, Hospitalization, Disabling)
  Sender: FDA-Public Use
  Company Number: None

PATIENT
  Age: 24 Year
  Sex: Female
  Weight: 73.94 kg

DRUGS (10)
  1. TOPAMATE [Concomitant]
  2. CETRIZINE [Concomitant]
     Active Substance: CETIRIZINE HYDROCHLORIDE
  3. LEVORA [Suspect]
     Active Substance: ETHINYL ESTRADIOL\LEVONORGESTREL
     Indication: CONTRACEPTION
     Dosage: 1
     Route: 048
     Dates: start: 20140201, end: 20140310
  4. SERTRALINE [Concomitant]
     Active Substance: SERTRALINE HYDROCHLORIDE
  5. GLUCOSAMINE [Concomitant]
     Active Substance: GLUCOSAMINE
  6. TYLENOL [Concomitant]
     Active Substance: ACETAMINOPHEN
  7. ASPIRIN. [Concomitant]
     Active Substance: ASPIRIN
  8. MULTI-VITAMIN [Concomitant]
     Active Substance: .ALPHA.-TOCOPHEROL ACETATE, DL-\ASCORBIC ACID\CYANOCOBALAMIN\FLUORIDE ION\FOLIC ACID\NIACIN\PYRIDOXINE\RIBOFLAVIN\THIAMINE\VITAMIN A\VITAMIN D
  9. CRANBERRY EXTRACT [Concomitant]
  10. MIRENA [Concomitant]
     Active Substance: LEVONORGESTREL

REACTIONS (10)
  - Headache [None]
  - Personality change [None]
  - Memory impairment [None]
  - Superior sagittal sinus thrombosis [None]
  - Hypersensitivity [None]
  - Retinal disorder [None]
  - Deep vein thrombosis [None]
  - Brain injury [None]
  - Seizure [None]
  - Depression [None]

NARRATIVE: CASE EVENT DATE: 20140311
